FAERS Safety Report 6595617-2 (Version None)
Quarter: 2010Q1

REPORT INFORMATION
  Report Type: 
  Country: None (occurrence: None)
  Receive Date: 20100216
  Receipt Date: 20100212
  Transmission Date: 20100710
  Serious: Yes (Other)
  Sender: FDA-Public Use
  Company Number: 10-063

PATIENT
  Age: 35 Year
  Sex: Female

DRUGS (2)
  1. ALEVE [Suspect]
     Indication: INFLAMMATION
     Dosage: ORAL
     Route: 048
     Dates: start: 20091227
  2. ALEVE [Suspect]
     Indication: MUSCLE SPASMS
     Dosage: ORAL
     Route: 048
     Dates: start: 20091227

REACTIONS (3)
  - BRAIN OEDEMA [None]
  - HEADACHE [None]
  - TENSION [None]
